FAERS Safety Report 5387678-3 (Version None)
Quarter: 2007Q3

REPORT INFORMATION
  Report Type: 
  Country: None (occurrence: None)
  Receive Date: 20070712
  Receipt Date: 20070702
  Transmission Date: 20080115
  Serious: Yes (Life-Threatening)
  Sender: FDA-Public Use
  Company Number: 2007RR-08345

PATIENT
  Age: 44 Year
  Sex: Male

DRUGS (2)
  1. AMOXICILLIN [Suspect]
     Indication: TOOTH ABSCESS
     Dosage: 250 MG, ORAL
     Route: 048
     Dates: start: 20070615, end: 20070616
  2. GARLIC [Concomitant]

REACTIONS (1)
  - SWOLLEN TONGUE [None]
